FAERS Safety Report 22114157 (Version 1)
Quarter: 2023Q1

REPORT INFORMATION
  Report Type: Report from Study
  Country: US (occurrence: None)
  Receive Date: 20230320
  Receipt Date: 20230320
  Transmission Date: 20230418
  Serious: Yes (Death)
  Sender: FDA-Public Use
  Company Number: US-ROCHE-3313154

PATIENT

DRUGS (2)
  1. VEMURAFENIB [Suspect]
     Active Substance: VEMURAFENIB
     Indication: Pancreatic carcinoma
     Dosage: LAST DOSE ON 14/JAN/2022, OFF FROM STUDY ON 14/FEB/2022
     Route: 065
     Dates: start: 20211116
  2. SORAFENIB [Suspect]
     Active Substance: SORAFENIB
     Indication: Pancreatic carcinoma
     Dosage: LAST DOSE ON 14/JAN/2022, OFF FROM STUDY ON 14/FEB/2022
     Route: 065
     Dates: start: 20211116

REACTIONS (1)
  - Disease progression [Fatal]
